FAERS Safety Report 6146037-6 (Version None)
Quarter: 2009Q2

REPORT INFORMATION
  Report Type: 
  Country: None (occurrence: None)
  Receive Date: 20090407
  Receipt Date: 20090326
  Transmission Date: 20091009
  Serious: No
  Sender: FDA-Public Use
  Company Number: US-ELI_LILLY_AND_COMPANY-US200902000532

PATIENT
  Age: 45 Year
  Sex: Female

DRUGS (10)
  1. FORTEO [Suspect]
     Indication: OSTEOPOROSIS
     Dosage: 20 UG, DAILY (1/D)
     Dates: start: 20080829, end: 20090101
  2. FORTEO [Suspect]
     Dosage: 20 UG, DAILY (1/D)
     Dates: start: 20090101
  3. PREDNISONE [Concomitant]
  4. LEVOXYL [Concomitant]
  5. TIAZAC [Concomitant]
  6. XANAX [Concomitant]
  7. ULTRACET [Concomitant]
  8. DDAVP [Concomitant]
     Indication: DIABETES MELLITUS
  9. LIPITOR [Concomitant]
  10. OMEPRAZOLE [Concomitant]

REACTIONS (3)
  - CHEST PAIN [None]
  - HYPERHIDROSIS [None]
  - NAUSEA [None]
